FAERS Safety Report 14268566 (Version 2)
Quarter: 2017Q4

REPORT INFORMATION
  Report Type: Spontaneous
  Country: CA (occurrence: CA)
  Receive Date: 20171211
  Receipt Date: 20171213
  Transmission Date: 20180321
  Serious: Yes (Other)
  Sender: FDA-Public Use
  Company Number: CA-JNJFOC-20171207880

PATIENT
  Sex: Male

DRUGS (1)
  1. RISPERDAL CONSTA [Suspect]
     Active Substance: RISPERIDONE
     Indication: BIPOLAR DISORDER
     Route: 065
     Dates: start: 2010, end: 201101

REACTIONS (7)
  - Depression [Unknown]
  - Asthenia [Unknown]
  - Somnolence [Unknown]
  - Weight increased [Unknown]
  - Medication error [Unknown]
  - Suicidal ideation [Unknown]
  - Dyspnoea [Unknown]
